FAERS Safety Report 10251987 (Version 4)
Quarter: 2015Q1

REPORT INFORMATION
  Report Type: Spontaneous
  Country: US (occurrence: US)
  Receive Date: 20140623
  Receipt Date: 20150313
  Transmission Date: 20150720
  Serious: Yes (Death, Life-Threatening, Congenital Anomaly, Other)
  Sender: FDA-Public Use
  Company Number: US-ELI_LILLY_AND_COMPANY-US201406006581

PATIENT

DRUGS (1)
  1. FLUOXETINE HYDROCHLORIDE. [Suspect]
     Active Substance: FLUOXETINE HYDROCHLORIDE
     Indication: PRODUCT USED FOR UNKNOWN INDICATION
     Dosage: 20 MG, QD
     Route: 064

REACTIONS (19)
  - Right ventricular hypertrophy [Unknown]
  - Tricuspid valve disease [Unknown]
  - Foetal heart rate deceleration abnormality [Unknown]
  - Persistent foetal circulation [Unknown]
  - Atrial septal defect [Unknown]
  - Emphysema [Unknown]
  - Cardiac failure [Unknown]
  - Hypoxia [Unknown]
  - Cerebral ventricle dilatation [Unknown]
  - Pneumothorax [Unknown]
  - Acute respiratory failure [Unknown]
  - Congenital diaphragmatic hernia [Unknown]
  - Foetal exposure during pregnancy [Recovered/Resolved]
  - Pulmonary valve incompetence [Fatal]
  - Pulmonary haemorrhage [Unknown]
  - Ductus arteriosus stenosis foetal [Unknown]
  - Pleural adhesion [Unknown]
  - Pulmonary malformation [Unknown]
  - Ventricular septal defect [Unknown]
